FAERS Safety Report 6837574-7 (Version None)
Quarter: 2010Q3

REPORT INFORMATION
  Report Type: 
  Country: None (occurrence: None)
  Receive Date: 20100713
  Receipt Date: 20070515
  Transmission Date: 20110219
  Serious: No
  Sender: FDA-Public Use
  Company Number: US-PFIZER INC-2007041270

PATIENT
  Sex: Female
  Weight: 47.727 kg

DRUGS (2)
  1. CHANTIX [Suspect]
     Indication: SMOKING CESSATION THERAPY
     Dosage: 1 MG BID EVERY DAY TDD:2 MG
     Dates: start: 20070507
  2. ANALGESICS [Interacting]
     Indication: PAIN

REACTIONS (3)
  - DRUG INTERACTION [None]
  - NAUSEA [None]
  - PAIN [None]
